FAERS Safety Report 7525112-5 (Version None)
Quarter: 2011Q2

REPORT INFORMATION
  Report Type: 
  Country: None (occurrence: None)
  Receive Date: 20110526
  Receipt Date: 20110518
  Transmission Date: 20111010
  Serious: Yes (Hospitalization)
  Sender: FDA-Public Use
  Company Number: DSU-2011-02899

PATIENT
  Age: 71 Year
  Sex: Male
  Weight: 107.9561 kg

DRUGS (6)
  1. LISINOPRIL [Concomitant]
  2. EXFORGE [Concomitant]
  3. TRIBENZOR (OLMESARTAN MEDOXOMIL, AMLODIPINE, HYDROCHLOROTHIAZIDE) (TAB [Suspect]
     Indication: HYPERTENSION
     Dosage: 40/5/12.5 MG QD, PER ORAL
     Route: 048
     Dates: start: 20110101
  4. TRIBENZOR (OLMESARTAN MEDOXOMIL, AMLODIPINE, HYDROCHLOROTHIAZIDE) (TAB [Suspect]
     Indication: HYPERTENSION
     Dosage: 40/5/12.5 MG QD, PER ORAL
     Route: 048
     Dates: start: 20101215
  5. TRIBENZOR (OLMESARTAN MEDOXOMIL, AMLODIPINE, HYDROCHLOROTHIAZIDE) (TAB [Suspect]
     Indication: HYPERTENSION
     Dosage: 40/5/12.5 MG QD, PER ORAL
     Route: 048
     Dates: start: 20110101, end: 20110418
  6. TRIBENZOR (OLMESARTAN MEDOXOMIL, AMLODIPINE, HYDROCHLOROTHIAZIDE) (TAB [Suspect]
     Indication: HYPERTENSION
     Dosage: 40/5/12.5 MG QD, PER ORAL
     Route: 048
     Dates: start: 20110101, end: 20110101

REACTIONS (4)
  - ATRIOVENTRICULAR BLOCK [None]
  - MUSCLE SPASMS [None]
  - PAIN [None]
  - BLOOD PRESSURE INADEQUATELY CONTROLLED [None]
